FAERS Safety Report 6834717-6 (Version None)
Quarter: 2010Q3

REPORT INFORMATION
  Report Type: 
  Country: None (occurrence: None)
  Receive Date: 20100712
  Receipt Date: 20070426
  Transmission Date: 20110219
  Serious: No
  Sender: FDA-Public Use
  Company Number: US-PFIZER INC-2007034886

PATIENT
  Sex: Male
  Weight: 110 kg

DRUGS (6)
  1. CHANTIX [Suspect]
     Indication: SMOKING CESSATION THERAPY
     Dates: start: 20070421
  2. FOSINOPRIL SODIUM [Concomitant]
     Indication: BLOOD PRESSURE ABNORMAL
  3. TRICOR [Concomitant]
  4. LEVOBUNOLOL HCL [Concomitant]
  5. XALATAN [Concomitant]
  6. MONTELUKAST SODIUM [Concomitant]
     Indication: MULTIPLE ALLERGIES

REACTIONS (2)
  - GLOSSODYNIA [None]
  - STOMATITIS [None]
